FAERS Safety Report 6861073-X (Version None)
Quarter: 2010Q3

REPORT INFORMATION
  Report Type: 
  Country: None (occurrence: None)
  Receive Date: 20100720
  Receipt Date: 20100713
  Transmission Date: 20110219
  Serious: Yes (Hospitalization, Other)
  Sender: FDA-Public Use
  Company Number: PHHY2010BR46750

PATIENT
  Age: 79 Year
  Sex: Female

DRUGS (5)
  1. EXELON [Suspect]
     Indication: DEMENTIA ALZHEIMER'S TYPE
     Dosage: 18 MG/10 CM2, 1 PATCH PER DAY
     Route: 062
     Dates: start: 20100505
  2. EXELON [Suspect]
     Dosage: 9 MG/5 CM2
     Route: 062
  3. MEMANTINE [Concomitant]
     Dosage: 10 MG, BID
  4. ATORVASTATIN [Concomitant]
  5. LEVOTHYROXINE SODIUM [Concomitant]

REACTIONS (2)
  - AGITATION [None]
  - ANGIOEDEMA [None]
